FAERS Safety Report 25738722 (Version 1)
Quarter: 2025Q3

REPORT INFORMATION
  Report Type: Spontaneous
  Country: JP (occurrence: JP)
  Receive Date: 20250829
  Receipt Date: 20250829
  Transmission Date: 20251020
  Serious: Yes (Hospitalization)
  Sender: PRINSTON PHARMACEUTICAL
  Company Number: JP-PRINSTON PHARMACEUTICAL INC.-2025PRN00279

PATIENT
  Age: 50 Year
  Sex: Female
  Weight: 91.4 kg

DRUGS (3)
  1. CLOBETASOL [Suspect]
     Active Substance: CLOBETASOL
     Indication: Benign familial pemphigus
     Dosage: 50 G, 1X/DAY
     Route: 061
  2. BETAMETHASONE [Suspect]
     Active Substance: BETAMETHASONE
     Indication: Benign familial pemphigus
     Dosage: 30 G, 1X/DAY
  3. BETAMETHASONE [Suspect]
     Active Substance: BETAMETHASONE
     Dosage: 15 G, 1X/DAY

REACTIONS (3)
  - Adrenal insufficiency [Recovering/Resolving]
  - Steroid withdrawal syndrome [Unknown]
  - Cushing^s syndrome [Recovering/Resolving]
